FAERS Safety Report 5951352-2 (Version None)
Quarter: 2008Q4

REPORT INFORMATION
  Report Type: 
  Country: None (occurrence: None)
  Receive Date: 20081113
  Receipt Date: 20081107
  Transmission Date: 20090506
  Serious: Yes (Death)
  Sender: FDA-Public Use
  Company Number: DE-SANOFI-SYNTHELABO-F04200800104

PATIENT
  Sex: Male

DRUGS (14)
  1. ANTITHYMOCYTE IMMUNOGLOBULINE [Concomitant]
     Indication: HEART TRANSPLANT
     Dosage: UNK
     Route: 065
  2. CYCLOSPORINE [Suspect]
     Indication: IMMUNOSUPPRESSION
     Dosage: 175 MG
     Route: 048
  3. CYCLOSPORINE [Suspect]
     Indication: HEART TRANSPLANT
     Dosage: 175 MG
     Route: 048
  4. CYCLOSPORINE [Suspect]
     Dosage: 50 MG
     Route: 048
  5. CYCLOSPORINE [Suspect]
     Dosage: 50 MG
     Route: 048
  6. VINCRISTINE [Suspect]
     Route: 042
     Dates: start: 20041201, end: 20050101
  7. PREDNISOLONE [Suspect]
     Indication: EPSTEIN-BARR VIRUS ASSOCIATED LYMPHOPROLIFERATIVE DISORDER
     Dosage: UNK
     Route: 065
     Dates: start: 20041201, end: 20050101
  8. PREDNISOLONE [Suspect]
     Indication: EPSTEIN-BARR VIRUS INFECTION
     Dosage: UNK
     Route: 065
     Dates: start: 20041201, end: 20050101
  9. GEMCITABINE HCL [Suspect]
     Indication: EPSTEIN-BARR VIRUS ASSOCIATED LYMPHOPROLIFERATIVE DISORDER
     Route: 041
     Dates: start: 20050101, end: 20050101
  10. GEMCITABINE HCL [Suspect]
     Indication: EPSTEIN-BARR VIRUS INFECTION
     Route: 041
     Dates: start: 20050101, end: 20050101
  11. RITUXIMAB [Suspect]
     Indication: EPSTEIN-BARR VIRUS ASSOCIATED LYMPHOPROLIFERATIVE DISORDER
     Route: 041
     Dates: start: 20050101, end: 20050101
  12. RITUXIMAB [Suspect]
     Indication: EPSTEIN-BARR VIRUS INFECTION
     Route: 041
     Dates: start: 20050101, end: 20050101
  13. OXALIPLATIN [Suspect]
     Indication: EPSTEIN-BARR VIRUS ASSOCIATED LYMPHOPROLIFERATIVE DISORDER
     Route: 041
     Dates: start: 20050101, end: 20050101
  14. OXALIPLATIN [Suspect]
     Indication: EPSTEIN-BARR VIRUS INFECTION
     Route: 041
     Dates: start: 20050101, end: 20050101

REACTIONS (7)
  - DISEASE PROGRESSION [None]
  - MUCOSAL INFLAMMATION [None]
  - NON-HODGKIN'S LYMPHOMA [None]
  - ORAL HERPES [None]
  - PANCYTOPENIA [None]
  - POLYNEUROPATHY [None]
  - SEPSIS [None]
